FAERS Safety Report 20128294 (Version 3)
Quarter: 2022Q1

REPORT INFORMATION
  Report Type: Report from Study
  Country: US (occurrence: None)
  Receive Date: 20211129
  Receipt Date: 20220131
  Transmission Date: 20220423
  Serious: Yes (Hospitalization)
  Sender: FDA-Public Use
  Company Number: US-ROCHE-2962203

PATIENT
  Age: 82 Year
  Sex: Male

DRUGS (3)
  1. TRASTUZUMAB [Suspect]
     Active Substance: TRASTUZUMAB
     Indication: Lung cancer metastatic
     Route: 065
     Dates: start: 20211022, end: 20211022
  2. NECITUMUMAB [Suspect]
     Active Substance: NECITUMUMAB
     Indication: Lung cancer metastatic
     Route: 042
     Dates: start: 20211022, end: 20211022
  3. BENADRYL [Suspect]
     Active Substance: DIPHENHYDRAMINE HYDROCHLORIDE
     Indication: Lung cancer metastatic
     Route: 042
     Dates: start: 20211022, end: 20211022

REACTIONS (5)
  - Cerebrovascular accident [Unknown]
  - Dizziness [Unknown]
  - Tremor [Unknown]
  - Myoclonus [Unknown]
  - Hyponatraemia [Recovered/Resolved]

NARRATIVE: CASE EVENT DATE: 20211023
